FAERS Safety Report 9003772 (Version 1)
Quarter: 2013Q1

REPORT INFORMATION
  Report Type: Spontaneous
  Country: US (occurrence: US)
  Receive Date: 20130108
  Receipt Date: 20130108
  Transmission Date: 20140127
  Serious: No
  Sender: FDA-Public Use
  Company Number: US-GLAXOSMITHKLINE-A0975956A

PATIENT
  Age: 54 Year
  Sex: Female

DRUGS (4)
  1. LOVAZA [Suspect]
     Indication: DEMENTIA
     Dosage: 1G PER DAY
     Route: 048
     Dates: start: 201201
  2. SINGULAIR [Concomitant]
  3. INHALERS [Concomitant]
  4. GLIMEPIRIDE [Concomitant]

REACTIONS (1)
  - Eructation [Not Recovered/Not Resolved]
